FAERS Safety Report 6467401-1 (Version None)
Quarter: 2009Q4

REPORT INFORMATION
  Report Type: 
  Country: None (occurrence: None)
  Receive Date: 20091202
  Receipt Date: 20091124
  Transmission Date: 20100525
  Serious: Yes (Other)
  Sender: FDA-Public Use
  Company Number: A0832373A

PATIENT
  Age: 53 Year
  Sex: Male

DRUGS (2)
  1. WELLBUTRIN [Suspect]
     Indication: BIPOLAR DISORDER
  2. DEPAKOTE [Concomitant]

REACTIONS (1)
  - TYPE 2 DIABETES MELLITUS [None]
